FAERS Safety Report 7813568-X (Version None)
Quarter: 2011Q4

REPORT INFORMATION
  Report Type: 
  Country: None (occurrence: None)
  Receive Date: 20111014
  Receipt Date: 20111007
  Transmission Date: 20120403
  Serious: No
  Sender: FDA-Public Use
  Company Number: US-BIOGENIDEC-2011BI038567

PATIENT
  Age: 55 Year
  Sex: Female

DRUGS (1)
  1. TYSABRI [Suspect]
     Indication: MULTIPLE SCLEROSIS
     Route: 042
     Dates: start: 20070509

REACTIONS (5)
  - BRONCHITIS [None]
  - SINUS CONGESTION [None]
  - SINUSITIS [None]
  - URETHRAL DISORDER [None]
  - URINARY TRACT INFECTION [None]
